FAERS Safety Report 5802995-8 (Version None)
Quarter: 2008Q2

REPORT INFORMATION
  Report Type: 
  Country: None (occurrence: None)
  Receive Date: 20080626
  Receipt Date: 20080616
  Transmission Date: 20081010
  Serious: Yes (Disabling)
  Sender: FDA-Public Use
  Company Number: 200813737

PATIENT
  Age: 87 Year
  Sex: Female

DRUGS (10)
  1. IMMUNE GLOBULIN INTRAVENOUS (HUMAN) [Suspect]
     Dosage: 10 G DAILY IV
     Route: 042
     Dates: start: 20080201, end: 20080401
  2. AMLODIPINE [Concomitant]
  3. ASPIRIN [Concomitant]
  4. BENDROFLUMETHIAZIDE [Concomitant]
  5. CITALOPRAM HYDROBROMIDE [Concomitant]
  6. LANSOPRAZOLE [Concomitant]
  7. METHOTREXATE [Concomitant]
  8. PERINDOPRIL ERBUMINE [Concomitant]
  9. PROPANTHELINE [Concomitant]
  10. PYRIDOSTIGMINE BROMIDE [Concomitant]

REACTIONS (1)
  - CHOREA [None]
